FAERS Safety Report 23048013 (Version 9)
Quarter: 2025Q1

REPORT INFORMATION
  Report Type: Report from Study
  Country: BR (occurrence: BR)
  Receive Date: 20231010
  Receipt Date: 20250317
  Transmission Date: 20250409
  Serious: Yes (Other)
  Sender: GLAXOSMITHKLINE
  Company Number: BR-GLAXOSMITHKLINE-BR2023AMR135682

PATIENT

DRUGS (3)
  1. BELIMUMAB [Suspect]
     Active Substance: BELIMUMAB
     Indication: Systemic lupus erythematosus
     Route: 042
     Dates: start: 20230619
  2. BELIMUMAB [Suspect]
     Active Substance: BELIMUMAB
     Dosage: UNK UNK, Q4W (400 OF 4)
     Route: 042
  3. IRON POLYMALTOSE [Suspect]
     Active Substance: IRON POLYMALTOSE
     Indication: Anaemia
     Dates: start: 20230619

REACTIONS (8)
  - Ectopic pregnancy [Unknown]
  - Malaise [Unknown]
  - Influenza [Recovered/Resolved]
  - Productive cough [Recovered/Resolved]
  - Sneezing [Recovered/Resolved]
  - Exposure during pregnancy [Unknown]
  - Product dose omission issue [Unknown]
  - Inappropriate schedule of product administration [Unknown]

NARRATIVE: CASE EVENT DATE: 20230905
